FAERS Safety Report 20353187 (Version 9)
Quarter: 2023Q2

REPORT INFORMATION
  Report Type: Spontaneous
  Country: US (occurrence: US)
  Receive Date: 20220119
  Receipt Date: 20230530
  Transmission Date: 20230722
  Serious: No
  Sender: FDA-Public Use
  Company Number: US-PFIZER INC-202101206032

PATIENT
  Age: 74 Year
  Sex: Female
  Weight: 43.09 kg

DRUGS (6)
  1. IBRANCE [Suspect]
     Active Substance: PALBOCICLIB
     Indication: Breast cancer metastatic
     Dosage: 75 MG, CYCLIC
     Route: 048
  2. IBRANCE [Suspect]
     Active Substance: PALBOCICLIB
     Dosage: 100 MG, CYCLIC (DAILY FOR 21 DAYS AND THEN OFF FOR 7 DAYS)
     Route: 048
     Dates: start: 201812
  3. IBRANCE [Suspect]
     Active Substance: PALBOCICLIB
     Dosage: 75 MG
  4. IBRANCE [Suspect]
     Active Substance: PALBOCICLIB
     Dosage: 100 MG
  5. FASLODEX [Concomitant]
     Active Substance: FULVESTRANT
     Dosage: UNK, MONTHLY
     Dates: start: 201901
  6. ZOMETA [Concomitant]
     Active Substance: ZOLEDRONIC ACID
     Dosage: UNK

REACTIONS (24)
  - Oral discomfort [Not Recovered/Not Resolved]
  - Cheilitis [Recovering/Resolving]
  - Lip pain [Recovering/Resolving]
  - Fatigue [Not Recovered/Not Resolved]
  - Tumour marker increased [Not Recovered/Not Resolved]
  - Tongue discomfort [Unknown]
  - Oral pain [Not Recovered/Not Resolved]
  - Glossodynia [Recovering/Resolving]
  - Full blood count abnormal [Unknown]
  - Confusional state [Unknown]
  - Dyspepsia [Unknown]
  - Humidity intolerance [Unknown]
  - Lip dry [Unknown]
  - Gingival disorder [Unknown]
  - Noninfective gingivitis [Unknown]
  - Feeling of despair [Unknown]
  - COVID-19 [Unknown]
  - Cough [Unknown]
  - Nasal congestion [Unknown]
  - Neoplasm progression [Unknown]
  - Bronchitis [Unknown]
  - Nasopharyngitis [Unknown]
  - Gingival pain [Unknown]
  - Alopecia [Unknown]

NARRATIVE: CASE EVENT DATE: 20181201
